FAERS Safety Report 5881182-1 (Version None)
Quarter: 2008Q3

REPORT INFORMATION
  Report Type: 
  Country: None (occurrence: None)
  Receive Date: 20080912
  Receipt Date: 20080620
  Transmission Date: 20090109
  Serious: No
  Sender: FDA-Public Use
  Company Number: US-ABBOTT-08P-163-0459053-00

PATIENT
  Sex: Male
  Weight: 118.49 kg

DRUGS (2)
  1. HUMIRA [Suspect]
     Indication: ARTHRITIS
     Route: 058
     Dates: start: 20030101
  2. QUINIDINE CLUC [Concomitant]
     Indication: CARDIAC DISORDER
     Route: 048
     Dates: start: 19960101

REACTIONS (1)
  - INJECTION SITE HAEMATOMA [None]
